FAERS Safety Report 24114016 (Version 1)
Quarter: 2024Q3

REPORT INFORMATION
  Report Type: Spontaneous
  Country: GB (occurrence: GB)
  Receive Date: 20240720
  Receipt Date: 20240720
  Transmission Date: 20241017
  Serious: Yes (Other)
  Sender: AUROBINDO
  Company Number: GB-MHRA-MED-202405081234535290-GTLKD

PATIENT
  Sex: Female

DRUGS (4)
  1. DULOXETINE [Suspect]
     Active Substance: DULOXETINE
     Indication: Fibromyalgia
     Dosage: 30 MILLIGRAM, DAILY
     Route: 065
     Dates: start: 20240318, end: 20240502
  2. LANSOPRAZOLE [Concomitant]
     Active Substance: LANSOPRAZOLE
     Indication: Product used for unknown indication
     Dosage: UNK
     Route: 065
  3. PROPRANOLOL [Concomitant]
     Active Substance: PROPRANOLOL HYDROCHLORIDE
     Indication: Product used for unknown indication
     Dosage: UNK
     Route: 065
  4. MEBEVERINE [Concomitant]
     Active Substance: MEBEVERINE
     Indication: Product used for unknown indication
     Dosage: UNK
     Route: 065

REACTIONS (3)
  - Head discomfort [Recovered/Resolved]
  - Ocular hypertension [Recovered/Resolved]
  - Hyperhidrosis [Recovered/Resolved]

NARRATIVE: CASE EVENT DATE: 20240502
